FAERS Safety Report 18726163 (Version 2)
Quarter: 2021Q1

REPORT INFORMATION
  Report Type: Spontaneous
  Country: NL (occurrence: IT)
  Receive Date: 20210111
  Receipt Date: 20210121
  Transmission Date: 20210419
  Serious: Yes (Other)
  Sender: FDA-Public Use
  Company Number: IT-FRESENIUS KABI-FK202100159

PATIENT
  Age: 60 Year
  Sex: Male

DRUGS (5)
  1. LINEZOLID KABI [Suspect]
     Active Substance: LINEZOLID
     Indication: PNEUMONITIS
     Dosage: 2 DF DAILY
     Route: 042
     Dates: start: 20201014, end: 20201029
  2. DEXAMETHASONE. [Concomitant]
     Active Substance: DEXAMETHASONE
     Indication: PRODUCT USED FOR UNKNOWN INDICATION
     Dosage: 4 MG/ML
  3. REMDESIVIR. [Suspect]
     Active Substance: REMDESIVIR
     Indication: CORONAVIRUS INFECTION
     Dosage: 1 DF DAILY
     Route: 042
     Dates: start: 20201015, end: 20201021
  4. CEFTRIAXONE. [Suspect]
     Active Substance: CEFTRIAXONE
     Indication: PNEUMONITIS
     Dosage: 1 DF (2000 MG) DAILY
     Route: 042
     Dates: start: 20201014, end: 20201029
  5. ENOXAPARIN SODIUM. [Concomitant]
     Active Substance: ENOXAPARIN SODIUM
     Indication: PRODUCT USED FOR UNKNOWN INDICATION
     Dosage: UNK

REACTIONS (1)
  - Hypertransaminasaemia [Recovering/Resolving]

NARRATIVE: CASE EVENT DATE: 20201020
